FAERS Safety Report 5069747-0 (Version None)
Quarter: 2006Q3

REPORT INFORMATION
  Report Type: 
  Country: None (occurrence: None)
  Receive Date: 20060731
  Receipt Date: 20060718
  Transmission Date: 20061208
  Serious: Yes (Other)
  Sender: FDA-Public Use
  Company Number: 2006083207

PATIENT
  Age: 42 Year
  Sex: Female

DRUGS (3)
  1. DOSTINEX [Suspect]
     Indication: HYPERPROLACTINAEMIA
     Dosage: 0.5 MG (0.5 MG, 2 IN 1 WK), ORAL
     Route: 048
     Dates: start: 20000101
  2. SYNTHROID [Concomitant]
  3. CEFALIUM              (CAFFEINE DIHYDROERGOTAMINE MESILATE, METOCLOPRA [Concomitant]

REACTIONS (1)
  - BRAIN NEOPLASM [None]
